FAERS Safety Report 4487929-3 (Version None)
Quarter: 2004Q4

REPORT INFORMATION
  Report Type: 
  Country: None (occurrence: None)
  Receive Date: 20041026
  Receipt Date: 20041011
  Transmission Date: 20050328
  Serious: Yes (Other)
  Sender: FDA-Public Use
  Company Number: USA040979102

PATIENT
  Age: 76 Year
  Sex: Female

DRUGS (1)
  1. EVISTA [Suspect]
     Route: 065
     Dates: start: 20030101, end: 20040101

REACTIONS (3)
  - ATHEROSCLEROSIS [None]
  - CAROTID ARTERY ANEURYSM [None]
  - EMBOLISM [None]
